FAERS Safety Report 23768063 (Version 1)
Quarter: 2024Q2

REPORT INFORMATION
  Report Type: Spontaneous
  Country: US (occurrence: US)
  Receive Date: 20240422
  Receipt Date: 20240422
  Transmission Date: 20240715
  Serious: No
  Sender: FDA-Public Use
  Company Number: US-TAKEDA-2024TUS036174

PATIENT
  Age: 26 Year
  Sex: Male
  Weight: 91 kg

DRUGS (3)
  1. VYVANSE [Suspect]
     Active Substance: LISDEXAMFETAMINE DIMESYLATE
     Indication: Narcolepsy
     Dosage: 60 MILLIGRAM
     Route: 065
  2. VYVANSE [Suspect]
     Active Substance: LISDEXAMFETAMINE DIMESYLATE
     Indication: Cataplexy
  3. EFFEXOR [Concomitant]
     Active Substance: VENLAFAXINE HYDROCHLORIDE
     Indication: Cataplexy
     Dosage: UNK
     Route: 065

REACTIONS (7)
  - Loss of personal independence in daily activities [Unknown]
  - Insomnia [Unknown]
  - Product availability issue [Unknown]
  - Product use in unapproved indication [Unknown]
  - Prescription drug used without a prescription [Unknown]
  - Product use issue [Unknown]
  - Incorrect dose administered [Unknown]
